FAERS Safety Report 10085916 (Version 3)
Quarter: 2014Q2

REPORT INFORMATION
  Report Type: Report from Study
  Country: CA (occurrence: CA)
  Receive Date: 20140418
  Receipt Date: 20140516
  Transmission Date: 20141212
  Serious: Yes (Hospitalization)
  Sender: FDA-Public Use
  Company Number: CA-JNJFOC-20140401648

PATIENT
  Age: 46 Year
  Sex: Male
  Weight: 79 kg

DRUGS (7)
  1. REMICADE [Suspect]
     Indication: COLITIS ULCERATIVE
     Route: 042
     Dates: start: 20140325
  2. REMICADE [Suspect]
     Indication: COLITIS ULCERATIVE
     Dosage: 3 RD TREATMENT
     Route: 042
     Dates: start: 20140509
  3. PREDNISONE [Suspect]
     Indication: PRODUCT USED FOR UNKNOWN INDICATION
     Dosage: DIE- DECREASING DOSE
     Route: 048
  4. PREDNISONE [Suspect]
     Indication: PRODUCT USED FOR UNKNOWN INDICATION
     Dosage: TAPERING DOE
     Route: 048
  5. ASACOL [Concomitant]
     Route: 048
  6. CALCIUM AND VITAMIN D [Concomitant]
     Route: 048
  7. 6 MP [Concomitant]
     Route: 048

REACTIONS (4)
  - Arterial thrombosis [Recovering/Resolving]
  - Acne [Unknown]
  - Infusion related reaction [Recovering/Resolving]
  - Pruritus [Recovering/Resolving]
